FAERS Safety Report 5977623-1 (Version None)
Quarter: 2008Q4

REPORT INFORMATION
  Report Type: 
  Country: None (occurrence: None)
  Receive Date: 20081201
  Receipt Date: 20081201
  Transmission Date: 20090506
  Serious: Yes (Death)
  Sender: FDA-Public Use
  Company Number: None

PATIENT
  Sex: Male
  Weight: 95.5 kg

DRUGS (9)
  1. NEXIUM [Suspect]
     Indication: GASTROOESOPHAGEAL REFLUX DISEASE
     Dosage: 40 MG TWICE DAILY PO
     Route: 048
  2. EPIRUBICIN [Suspect]
     Indication: OESOPHAGEAL CARCINOMA
     Dosage: 110 MG ONCE IV
     Route: 042
     Dates: start: 20081110
  3. OXALIPLATIN [Suspect]
     Indication: OESOPHAGEAL CARCINOMA
     Dosage: 290 MG ONCE Q3 WK IV
     Route: 042
     Dates: start: 20081110
  4. FLUOROURACIL [Suspect]
     Indication: OESOPHAGEAL CARCINOMA
     Dosage: 3080 MG CONTINUOUS 7DAYS IV
     Route: 042
     Dates: start: 20081110, end: 20081117
  5. DEXAMETHASONE [Suspect]
     Indication: NAUSEA
     Dosage: 10 MG ONCE IV
     Route: 042
     Dates: start: 20081110
  6. FLUOROURACIL [Suspect]
     Indication: OESOPHAGEAL CARCINOMA
     Dosage: 3080 MG CONTINUOUS 7DAYS IV
     Route: 042
     Dates: start: 20081117
  7. BENADRYL [Suspect]
     Indication: NAUSEA
     Dosage: 25 MG ONCE IV
     Route: 042
     Dates: start: 20081110
  8. KYTRIL [Suspect]
     Indication: NAUSEA
     Dosage: 1 MG ONCE IV
     Route: 042
     Dates: start: 20081110
  9. COMPAZINE [Suspect]
     Indication: NAUSEA
     Dosage: 10 MG Q 6 HOURS PRN ORAL
     Route: 048
     Dates: start: 20081110

REACTIONS (2)
  - CARDIAC ARREST [None]
  - SYNCOPE [None]
